FAERS Safety Report 9089625 (Version 5)
Quarter: 2013Q2

REPORT INFORMATION
  Report Type: Report from Study
  Country: PL (occurrence: PL)
  Receive Date: 20130201
  Receipt Date: 20130416
  Transmission Date: 20140414
  Serious: Yes (Hospitalization, Other)
  Sender: FDA-Public Use
  Company Number: PL-AMGEN-POLCT2012076207

PATIENT
  Age: 71 Year
  Sex: Male

DRUGS (9)
  1. DENOSUMAB [Suspect]
     Indication: BONE GIANT CELL TUMOUR
     Dosage: 120 MG, Q4WK
     Route: 058
     Dates: start: 20100907, end: 20121030
  2. NEDAL [Concomitant]
     Indication: HYPERTENSION
     Dosage: 5 MG, QD
     Route: 048
     Dates: start: 20070415
  3. VIVACE [Concomitant]
     Indication: HYPERTENSION
     Dosage: 2.5 MG, QD
     Route: 048
     Dates: start: 20070415
  4. AMLOZEK [Concomitant]
     Indication: HYPERTENSION
     Dosage: 5 MG, QD
     Route: 048
     Dates: start: 20070415
  5. CAVINTON [Concomitant]
     Indication: HYPERTENSION
     Dosage: 5 MG, BID
     Route: 048
     Dates: start: 20070415
  6. ESTAZOLAM [Concomitant]
     Indication: INSOMNIA
     Dosage: 2 MG, QD
     Route: 048
     Dates: start: 20110824, end: 20121030
  7. VESTIBO [Concomitant]
     Indication: DIZZINESS
     Dosage: 24 MG, BID
     Route: 048
     Dates: start: 20110824
  8. SUVARDIO [Concomitant]
     Indication: HYPERCHOLESTEROLAEMIA
     Dosage: 10 MG, QD
     Route: 048
     Dates: start: 20110830
  9. VITRUM CALCIUM [Concomitant]
     Dosage: UNK
     Dates: end: 20130115

REACTIONS (2)
  - Osteitis [Recovering/Resolving]
  - Myeloproliferative disorder [Not Recovered/Not Resolved]
